FAERS Safety Report 25621809 (Version 2)
Quarter: 2025Q3

REPORT INFORMATION
  Report Type: Report from Study
  Country: IN (occurrence: IN)
  Receive Date: 20250730
  Receipt Date: 20250818
  Transmission Date: 20251020
  Serious: Yes (Hospitalization)
  Sender: ROCHE
  Company Number: IN-ROCHE-10000348808

PATIENT
  Sex: Male

DRUGS (1)
  1. RITUXIMAB [Suspect]
     Active Substance: RITUXIMAB
     Indication: Diffuse large B-cell lymphoma
     Route: 065
     Dates: start: 20250512

REACTIONS (5)
  - Bedridden [Unknown]
  - Discomfort [Unknown]
  - Gait disturbance [Unknown]
  - Gait disturbance [Unknown]
  - Constipation [Unknown]
